FAERS Safety Report 8821142 (Version 1)
Quarter: 2012Q4

REPORT INFORMATION
  Report Type: 
  Country: US (occurrence: US)
  Receive Date: 20121002
  Receipt Date: 20121002
  Transmission Date: 20130627
  Serious: No
  Sender: FDA-Public Use
  Company Number: US-BRISTOL-MYERS SQUIBB COMPANY-16108318

PATIENT
  Age: 34 Year
  Sex: Male
  Weight: 109 kg

DRUGS (4)
  1. BUSPAR [Suspect]
     Dosage: started approx 5 months ago as 10mg QD,incd 10mg BID, incd 20mg BID,incd 30mg BID;less than a month
  2. CELEXA [Concomitant]
  3. PROTONIX [Concomitant]
  4. CONCERTA [Concomitant]

REACTIONS (3)
  - Skin odour abnormal [Unknown]
  - Urine odour abnormal [Unknown]
  - Abnormal faeces [Unknown]
